FAERS Safety Report 23481007 (Version 1)
Quarter: 2024Q1

REPORT INFORMATION
  Report Type: Spontaneous
  Country: US (occurrence: None)
  Receive Date: 20240202
  Receipt Date: 20240202
  Transmission Date: 20240410
  Serious: Yes (Hospitalization)
  Sender: FDA-Public Use
  Company Number: None

PATIENT
  Age: 53 Year
  Sex: Female

DRUGS (13)
  1. ADEMPAS [Suspect]
     Active Substance: RIOCIGUAT
     Indication: Pulmonary arterial hypertension
     Dosage: FREQUENCY : 3 TIMES A DAY;?
     Route: 048
     Dates: start: 20221021
  2. ADEMPAS [Suspect]
     Active Substance: RIOCIGUAT
     Indication: Pulmonary arterial hypertension
     Dosage: FREQUENCY : 3 TIMES A DAY;?
     Route: 048
     Dates: start: 20221021
  3. OPSUMIT [Concomitant]
     Active Substance: MACITENTAN
  4. REMODULIN [Concomitant]
  5. FUROSEMIDE [Concomitant]
     Active Substance: FUROSEMIDE
  6. GABAPENTIN [Concomitant]
  7. METOCLOPRAMIDE [Concomitant]
     Active Substance: METOCLOPRAMIDE
  8. OMEPRAZOLE [Concomitant]
     Active Substance: OMEPRAZOLE
  9. PAROXETINE [Concomitant]
  10. trazodine [Concomitant]
  11. FLONASE [Concomitant]
     Active Substance: FLUTICASONE PROPIONATE
  12. IMITREX [Concomitant]
     Active Substance: SUMATRIPTAN SUCCINATE
  13. voltaren top gel [Concomitant]

REACTIONS (1)
  - Pulmonary hypertension [None]

NARRATIVE: CASE EVENT DATE: 20240105
